FAERS Safety Report 10085713 (Version 3)
Quarter: 2014Q2

REPORT INFORMATION
  Report Type: Spontaneous
  Country: US (occurrence: US)
  Receive Date: 20140418
  Receipt Date: 20140624
  Transmission Date: 20141212
  Serious: Yes (Hospitalization, Other)
  Sender: FDA-Public Use
  Company Number: US-ASTRAZENECA-2014SE25649

PATIENT
  Age: 80 Year
  Sex: Female
  Weight: 69.4 kg

DRUGS (10)
  1. NEXIUM [Suspect]
     Indication: GASTROOESOPHAGEAL REFLUX DISEASE
     Route: 048
     Dates: start: 2001
  2. ALLOPURINOL [Concomitant]
     Indication: GOUT
     Route: 048
     Dates: start: 2005
  3. TEMAZEPAM [Concomitant]
     Indication: SLEEP DISORDER
     Route: 048
     Dates: start: 201403
  4. PLAVIX [Concomitant]
     Indication: CARDIAC DISORDER
     Route: 048
     Dates: start: 2002
  5. POTASSIUM [Concomitant]
     Indication: SUPPLEMENTATION THERAPY
     Route: 048
     Dates: start: 2002
  6. BABY ASPIRIN [Concomitant]
     Route: 048
     Dates: start: 1997
  7. FUROSEMIDE [Concomitant]
     Indication: SWELLING
     Route: 048
     Dates: start: 2002
  8. GABAPENTIN [Concomitant]
     Indication: NEUROPATHY PERIPHERAL
     Route: 048
     Dates: start: 2010
  9. NITRATES [Concomitant]
     Indication: CHEST PAIN
     Dosage: PRN
     Route: 048
  10. CHERATUSSIN AC [Concomitant]
     Indication: COUGH
     Dosage: 2 TEASPOONS PRN
     Route: 048

REACTIONS (19)
  - Myocardial infarction [Unknown]
  - Angina pectoris [Unknown]
  - Cardiac failure congestive [Unknown]
  - Gout [Unknown]
  - Spinal fracture [Unknown]
  - Fall [Unknown]
  - Procedural complication [Unknown]
  - Osteoporosis [Unknown]
  - Dyspepsia [Unknown]
  - Neuropathy peripheral [Unknown]
  - Musculoskeletal discomfort [Unknown]
  - Nightmare [Unknown]
  - Burning mouth syndrome [Unknown]
  - Cough [Unknown]
  - Body height decreased [Unknown]
  - Renal disorder [Unknown]
  - Eructation [Unknown]
  - Insomnia [Unknown]
  - Drug dose omission [Unknown]
